FAERS Safety Report 5130913-7 (Version None)
Quarter: 2006Q3

REPORT INFORMATION
  Report Type: 
  Country: None (occurrence: None)
  Receive Date: 20060829
  Receipt Date: 20060518
  Transmission Date: 20061208
  Serious: No
  Sender: FDA-Public Use
  Company Number: PHEH2006US03393

PATIENT
  Age: 65 Year
  Sex: Male
  Weight: 113.4 kg

DRUGS (8)
  1. EXJADE [Suspect]
     Indication: BLOOD IRON INCREASED
     Dosage: SEE IMAGE
     Route: 048
     Dates: start: 20060117, end: 20060312
  2. EXJADE [Suspect]
     Indication: BLOOD IRON INCREASED
     Dosage: SEE IMAGE
     Route: 048
     Dates: start: 20060313
  3. TOPROL-XL [Concomitant]
  4. AMARYL [Concomitant]
  5. BUMEX [Concomitant]
  6. ALTACE [Concomitant]
  7. PRILOSEC [Concomitant]
  8. GLUCOPHAGE [Concomitant]

REACTIONS (2)
  - BLOOD CREATININE INCREASED [None]
  - BLOOD UREA INCREASED [None]
